FAERS Safety Report 17138755 (Version 1)
Quarter: 2019Q4

REPORT INFORMATION
  Report Type: Spontaneous
  Country: US (occurrence: US)
  Receive Date: 20191210
  Receipt Date: 20191210
  Transmission Date: 20200122
  Serious: No
  Sender: FDA-Public Use
  Company Number: None

PATIENT
  Age: 59 Year
  Sex: Female
  Weight: 81 kg

DRUGS (5)
  1. VITAMINS D3, K2, C [Concomitant]
  2. SELENIUM [Concomitant]
     Active Substance: SELENIUM
  3. FOLATE [Concomitant]
     Active Substance: FOLATE SODIUM
  4. LEVAQUIN [Suspect]
     Active Substance: LEVOFLOXACIN
     Indication: ATYPICAL PNEUMONIA
     Route: 048
  5. VITAMIN B COMPLEX [Concomitant]
     Active Substance: CYANOCOBALAMIN\DEXPANTHENOL\NIACINAMIDE\PYRIDOXINE HYDROCHLORIDE\RIBOFLAVIN 5^-PHOSPHATE SODIUM\THIAMINE HYDROCHLORIDE\VITAMIN B COMPLEX

REACTIONS (4)
  - Tendon pain [None]
  - Musculoskeletal pain [None]
  - Neuralgia [None]
  - Hypoaesthesia [None]

NARRATIVE: CASE EVENT DATE: 20160313
